FAERS Safety Report 23816548 (Version 1)
Quarter: 2024Q2

REPORT INFORMATION
  Report Type: Spontaneous
  Country: US (occurrence: US)
  Receive Date: 20240503
  Receipt Date: 20240503
  Transmission Date: 20240716
  Serious: Yes (Other)
  Sender: FDA-Public Use
  Company Number: US-MLMSERVICE-20240419-PI033899-00135-1

PATIENT
  Age: 16 Year
  Sex: Female

DRUGS (20)
  1. ERYTHROMYCIN [Suspect]
     Active Substance: ERYTHROMYCIN
     Indication: Gastrointestinal motility disorder
     Route: 065
  2. KETOROLAC [Concomitant]
     Active Substance: KETOROLAC TROMETHAMINE
     Indication: Analgesic therapy
  3. LORAZEPAM [Concomitant]
     Active Substance: LORAZEPAM
     Indication: Paroxysmal sympathetic hyperactivity
  4. LORAZEPAM [Concomitant]
     Active Substance: LORAZEPAM
     Indication: Epilepsy
     Route: 042
  5. ALUMINUM HYDROXIDE [Concomitant]
     Active Substance: ALUMINUM HYDROXIDE
     Indication: Gastritis prophylaxis
     Dosage: G-TUBE ADMINISTRATION
  6. MORPHINE [Concomitant]
     Active Substance: MORPHINE
     Indication: Analgesic therapy
  7. LEVOCARNITINE [Concomitant]
     Active Substance: LEVOCARNITINE
     Indication: Supplementation therapy
     Route: 040
  8. GABAPENTIN [Concomitant]
     Active Substance: GABAPENTIN
     Indication: Paroxysmal sympathetic hyperactivity
  9. BACLOFEN [Concomitant]
     Active Substance: BACLOFEN
     Indication: Dystonia
  10. BACLOFEN [Concomitant]
     Active Substance: BACLOFEN
     Indication: Muscle spasticity
  11. DEXMEDETOMIDINE HYDROCHLORIDE [Concomitant]
     Active Substance: DEXMEDETOMIDINE HYDROCHLORIDE
     Indication: Paroxysmal sympathetic hyperactivity
  12. ACETAMINOPHEN [Concomitant]
     Active Substance: ACETAMINOPHEN
     Indication: Analgesic therapy
  13. LEVETIRACETAM [Concomitant]
     Active Substance: LEVETIRACETAM
     Indication: Epilepsy
     Route: 042
  14. FAMOTIDINE [Concomitant]
     Active Substance: FAMOTIDINE
     Indication: Gastritis prophylaxis
     Route: 042
  15. MAGNESIUM HYDROXIDE [Concomitant]
     Active Substance: MAGNESIUM HYDROXIDE
     Indication: Gastritis prophylaxis
     Dosage: G-TUBE ADMINISTRATION
  16. SIMETHICONE (DIMETHICONE) [Concomitant]
     Active Substance: DIMETHICONE
     Indication: Gastritis prophylaxis
     Dosage: G-TUBE ADMINISTRATION
  17. CLONIDINE [Concomitant]
     Active Substance: CLONIDINE
     Indication: Paroxysmal sympathetic hyperactivity
  18. ACETAMINOPHEN [Concomitant]
     Active Substance: ACETAMINOPHEN
     Indication: Pain
     Dosage: TRIALED
  19. VITAMINS [Concomitant]
     Active Substance: VITAMINS
     Indication: Vitamin supplementation
     Dosage: ADULT-DOSAGE
  20. VITAMIN B [Concomitant]
     Active Substance: VITAMIN B
     Indication: Vitamin supplementation
     Dosage: SUPPLEMENTATION

REACTIONS (1)
  - Electrocardiogram QT prolonged [Unknown]
